FAERS Safety Report 25333672 (Version 1)
Quarter: 2025Q2

REPORT INFORMATION
  Report Type: Spontaneous
  Country: US (occurrence: US)
  Receive Date: 20250520
  Receipt Date: 20250520
  Transmission Date: 20250717
  Serious: Yes (Other)
  Sender: COOPERSURGICAL
  Company Number: US-COOPERSURGICAL, INC.-2025CPS003856

PATIENT
  Age: 33 Year
  Sex: Female
  Weight: 76.19 kg

DRUGS (1)
  1. PARAGARD T 380A [Suspect]
     Active Substance: COPPER
     Indication: Contraception
     Route: 015
     Dates: start: 20110310

REACTIONS (12)
  - Uterine leiomyoma [Unknown]
  - Device breakage [Recovered/Resolved]
  - Embedded device [Recovered/Resolved]
  - Abdominal pain upper [Unknown]
  - Anxiety [Recovered/Resolved]
  - Asthenia [Unknown]
  - Fatigue [Unknown]
  - Abnormal uterine bleeding [Recovered/Resolved]
  - Muscle spasms [Unknown]
  - Pain [Recovered/Resolved]
  - Device use issue [Recovered/Resolved]
  - Off label use [Unknown]

NARRATIVE: CASE EVENT DATE: 20110310
